FAERS Safety Report 14999230 (Version 2)
Quarter: 2018Q3

REPORT INFORMATION
  Report Type: Spontaneous
  Country: CZ (occurrence: CZ)
  Receive Date: 20180612
  Receipt Date: 20180703
  Transmission Date: 20181010
  Serious: Yes (Other)
  Sender: FDA-Public Use
  Company Number: CZ-009507513-1806CZE002207

PATIENT
  Age: 40 Year
  Sex: Male
  Weight: 84 kg

DRUGS (2)
  1. CIPRALEX [Concomitant]
     Active Substance: ESCITALOPRAM OXALATE
     Indication: DEPRESSION
     Dosage: THE DOSAGE: 1,5 TABLET IN THE AFTERNOON.
     Route: 048
     Dates: start: 201707, end: 20180510
  2. AERIUS [Suspect]
     Active Substance: DESLORATADINE
     Indication: SEASONAL ALLERGY
     Dosage: 5 MG, QD; THE DOSAGE: ONE TABLET IN THE MORNING DURING ALLERGY, HE ADMINISTERED MEDICINAL PRODUCT
     Route: 048
     Dates: start: 200805, end: 20180430

REACTIONS (4)
  - Fatigue [Unknown]
  - Anxiety [Recovered/Resolved]
  - Panic attack [Recovered/Resolved]
  - Depression [Recovered/Resolved]

NARRATIVE: CASE EVENT DATE: 20180430
